FAERS Safety Report 9485100 (Version 1)
Quarter: 2013Q3

REPORT INFORMATION
  Report Type: Spontaneous
  Country: US (occurrence: US)
  Receive Date: 20130828
  Receipt Date: 20130828
  Transmission Date: 20140515
  Serious: No
  Sender: FDA-Public Use
  Company Number: US-ABBOTT-13P-163-1132986-00

PATIENT
  Age: 66 Year
  Sex: Male
  Weight: 112.59 kg

DRUGS (5)
  1. ANDROGEL [Suspect]
     Indication: ASTHENIA
     Dosage: 40.5 MILLIGRAMS DAILY
     Route: 061
     Dates: start: 20130709
  2. DHEA [Concomitant]
     Indication: VITAMIN SUPPLEMENTATION
  3. IRON [Concomitant]
     Indication: VITAMIN SUPPLEMENTATION
  4. MULTIPLE VITAMIN [Concomitant]
     Indication: VITAMIN SUPPLEMENTATION
  5. FLO MAX [Concomitant]
     Indication: PROSTATOMEGALY

REACTIONS (2)
  - Blood testosterone decreased [Unknown]
  - Off label use [Unknown]
